FAERS Safety Report 4847228-4 (Version None)
Quarter: 2005Q4

REPORT INFORMATION
  Report Type: 
  Country: None (occurrence: None)
  Receive Date: 20051207
  Receipt Date: 20051128
  Transmission Date: 20060501
  Serious: Yes (Other)
  Sender: FDA-Public Use
  Company Number: 8013271

PATIENT
  Age: 68 Year
  Sex: Male

DRUGS (11)
  1. ALBUTEROL [Suspect]
     Indication: DRUG USE FOR UNKNOWN INDICATION
     Route: 065
  2. ZYRTEC [Suspect]
     Indication: DRUG USE FOR UNKNOWN INDICATION
  3. LIPITOR [Suspect]
     Indication: BLOOD CHOLESTEROL INCREASED
     Dosage: 10MG PER DAY
     Dates: start: 19990101
  4. VITAMIN B-12 [Suspect]
  5. FLOMAX [Suspect]
     Indication: DRUG USE FOR UNKNOWN INDICATION
  6. ISMO [Suspect]
     Indication: DRUG USE FOR UNKNOWN INDICATION
  7. LORAZEPAM [Suspect]
  8. METOPROLOL [Suspect]
  9. NEXIUM [Suspect]
     Indication: DRUG USE FOR UNKNOWN INDICATION
  10. NIASPAN [Suspect]
     Indication: DRUG USE FOR UNKNOWN INDICATION
  11. PLAVIX [Suspect]
     Indication: DRUG USE FOR UNKNOWN INDICATION

REACTIONS (13)
  - BLINDNESS UNILATERAL [None]
  - BLOOD CHOLESTEROL DECREASED [None]
  - BLOOD GLUCOSE INCREASED [None]
  - BLOOD UREA NITROGEN/CREATININE RATIO DECREASED [None]
  - CATARACT [None]
  - EYE IRRITATION [None]
  - EYE PAIN [None]
  - HEARING IMPAIRED [None]
  - IMPAIRED HEALING [None]
  - INTERNATIONAL NORMALISED RATIO DECREASED [None]
  - JAW FRACTURE [None]
  - LACRIMATION INCREASED [None]
  - NASAL OPERATION [None]
